FAERS Safety Report 4459455-9 (Version None)
Quarter: 2004Q3

REPORT INFORMATION
  Report Type: 
  Country: None (occurrence: None)
  Receive Date: 20040927
  Receipt Date: 20040916
  Transmission Date: 20050211
  Serious: Yes (Death, Hospitalization, Other)
  Sender: FDA-Public Use
  Company Number: ES-ABBOTT-04P-144-0273671-00

PATIENT
  Age: 49 Year
  Sex: Male

DRUGS (4)
  1. KALETRA [Suspect]
     Indication: HIV INFECTION
     Route: 048
     Dates: start: 20040225, end: 20040823
  2. STAVUDINE [Concomitant]
     Indication: HIV INFECTION
  3. LAMIVUDINE [Concomitant]
     Indication: HIV INFECTION
  4. CHOP [Concomitant]
     Indication: B-CELL LYMPHOMA

REACTIONS (4)
  - B-CELL LYMPHOMA [None]
  - DIFFUSE LARGE B-CELL LYMPHOMA [None]
  - PYREXIA [None]
  - SEPSIS [None]
